FAERS Safety Report 8358832-3 (Version None)
Quarter: 2012Q2

REPORT INFORMATION
  Report Type: 
  Country: None (occurrence: None)
  Receive Date: 20120515
  Receipt Date: 20120430
  Transmission Date: 20120825
  Serious: Yes (Hospitalization, Other)
  Sender: FDA-Public Use
  Company Number: PHHY2012PK039219

PATIENT
  Age: 40 Year
  Sex: Male

DRUGS (3)
  1. CYCLOSPORINE [Suspect]
     Indication: RENAL TRANSPLANT
     Dosage: UNK UKN, UNK
  2. PREDNISOLONE [Concomitant]
     Indication: RENAL TRANSPLANT
  3. AZATHIOPRINE [Concomitant]
     Indication: RENAL TRANSPLANT

REACTIONS (11)
  - JAUNDICE [None]
  - HEPATITIS C [None]
  - ENTEROCOCCAL INFECTION [None]
  - HEPATITIS CHOLESTATIC [None]
  - DRUG INEFFECTIVE [None]
  - PANCYTOPENIA [None]
  - LIVER FUNCTION TEST ABNORMAL [None]
  - KIDNEY TRANSPLANT REJECTION [None]
  - PYREXIA [None]
  - BLOOD CREATININE INCREASED [None]
  - IMMUNOSUPPRESSANT DRUG LEVEL DECREASED [None]
